FAERS Safety Report 6618596-8 (Version None)
Quarter: 2010Q1

REPORT INFORMATION
  Report Type: 
  Country: None (occurrence: None)
  Receive Date: 20100308
  Receipt Date: 20100302
  Transmission Date: 20100710
  Serious: Yes (Hospitalization)
  Sender: FDA-Public Use
  Company Number: GXKR2010DE02499

PATIENT
  Sex: Male

DRUGS (8)
  1. FLUOROURACIL [Suspect]
     Indication: COLORECTAL CANCER METASTATIC
     Dosage: 4800 MG, BIW
     Route: 042
     Dates: start: 20091022
  2. IRINOTECAN HYDROCHLORIDE [Suspect]
     Indication: COLORECTAL CANCER METASTATIC
     Dosage: 360 MG, BIW
     Route: 042
     Dates: start: 20091022
  3. CETUXIMAB [Suspect]
     Indication: COLORECTAL CANCER METASTATIC
     Dosage: 600 MG, QW
     Route: 065
     Dates: start: 20091022
  4. FOLINIC ACID [Suspect]
     Indication: COLORECTAL CANCER METASTATIC
     Dosage: 800 MG, BIW
     Route: 042
     Dates: start: 20091022
  5. CREON [Concomitant]
  6. VERGENTAN [Concomitant]
  7. OMEPRAZOLE [Concomitant]
  8. NOVALGIN                                /SCH/ [Concomitant]

REACTIONS (1)
  - INTESTINAL ANASTOMOSIS COMPLICATION [None]
